FAERS Safety Report 10789595 (Version 2)
Quarter: 2015Q1

REPORT INFORMATION
  Report Type: Report from Study
  Country: IL (occurrence: IL)
  Receive Date: 20150212
  Receipt Date: 20150323
  Transmission Date: 20150721
  Serious: No
  Sender: FDA-Public Use
  Company Number: IL-NOVOPROD-438082

PATIENT
  Age: 70 Year
  Sex: Male

DRUGS (7)
  1. GLUCOPHAGE LA [Concomitant]
     Dosage: BID
  2. DIOVAN [Concomitant]
     Active Substance: VALSARTAN
     Dosage: 80 MG, QD
  3. LANTUS [Concomitant]
     Active Substance: INSULIN GLARGINE
     Dosage: 40-45 UNIT PER DAY
  4. MICROPIRIN [Concomitant]
     Dosage: 100 MG, QD
  5. LIRAGLUTIDE FLEXPEN [Suspect]
     Active Substance: LIRAGLUTIDE
     Indication: TYPE 2 DIABETES MELLITUS
     Dosage: 0.6 MG, QD (0.6 MG 1/DAY)
     Route: 058
  6. LIPITOR ORIFARM [Concomitant]
     Dosage: 10 MG, QD
  7. NORMITEN [Concomitant]
     Active Substance: ATENOLOL
     Dosage: 12.5 MG, BID

REACTIONS (2)
  - Drug hypersensitivity [Recovered/Resolved]
  - Blood glucose abnormal [Recovered/Resolved]
